FAERS Safety Report 23584287 (Version 1)
Quarter: 2024Q1

REPORT INFORMATION
  Report Type: Spontaneous
  Country: US (occurrence: None)
  Receive Date: 20240301
  Receipt Date: 20240301
  Transmission Date: 20240410
  Serious: No
  Sender: FDA-Public Use
  Company Number: 2024A039497

PATIENT
  Sex: Male

DRUGS (6)
  1. BRILINTA [Suspect]
     Active Substance: TICAGRELOR
     Indication: Stent placement
     Route: 048
     Dates: start: 20240109
  2. LISINOPRIL [Concomitant]
     Active Substance: LISINOPRIL
     Dosage: 20
     Route: 048
  3. ROSUVASTATIN [Concomitant]
     Active Substance: ROSUVASTATIN
     Dosage: 20
     Route: 048
  4. ASPIRIN [Concomitant]
     Active Substance: ASPIRIN
     Route: 048
  5. AMLODIPINE [Concomitant]
     Active Substance: AMLODIPINE BESYLATE
  6. CLOPIDOGREL [Concomitant]
     Active Substance: CLOPIDOGREL BISULFATE

REACTIONS (12)
  - Amnesia [Unknown]
  - Ill-defined disorder [Unknown]
  - Varicose vein [Unknown]
  - Peripheral swelling [Unknown]
  - Exercise tolerance decreased [Unknown]
  - Fatigue [Unknown]
  - Abdominal distension [Unknown]
  - Dyspnoea [Unknown]
  - Creatinine urine abnormal [Unknown]
  - Urine albumin/creatinine ratio abnormal [Unknown]
  - Balance disorder [Unknown]
  - Drug intolerance [Unknown]
